FAERS Safety Report 7275467-4 (Version None)
Quarter: 2011Q1

REPORT INFORMATION
  Report Type: 
  Country: None (occurrence: None)
  Receive Date: 20110204
  Receipt Date: 20110125
  Transmission Date: 20110831
  Serious: Yes (Hospitalization, Other)
  Sender: FDA-Public Use
  Company Number: GB-SANOFI-AVENTIS-2011SA005335

PATIENT
  Age: 68 Year
  Sex: Male

DRUGS (2)
  1. RIFAMPICIN [Suspect]
     Indication: ENDOCARDITIS
     Route: 065
     Dates: start: 20100626, end: 20100714
  2. DAPTOMYCIN [Suspect]
     Indication: ENDOCARDITIS
     Route: 042
     Dates: start: 20100714, end: 20100801

REACTIONS (4)
  - PNEUMONITIS [None]
  - DYSPNOEA [None]
  - EOSINOPHILIC PNEUMONIA [None]
  - EOSINOPHILIA [None]
